FAERS Safety Report 14567413 (Version 2)
Quarter: 2018Q1

REPORT INFORMATION
  Report Type: Report from Study
  Country: US (occurrence: US)
  Receive Date: 20180223
  Receipt Date: 20180308
  Transmission Date: 20180509
  Serious: Yes (Death, Hospitalization, Other)
  Sender: FDA-Public Use
  Company Number: US-BAUSCH-BL-2018-004979

PATIENT
  Age: 72 Year
  Sex: Female
  Weight: 69.92 kg

DRUGS (1)
  1. XIFAXAN [Suspect]
     Active Substance: RIFAXIMIN
     Indication: HEPATIC CIRRHOSIS
     Route: 065
     Dates: start: 201712

REACTIONS (6)
  - Sepsis [Unknown]
  - Septic shock [Fatal]
  - Clostridium difficile infection [Unknown]
  - Urinary tract infection [Unknown]
  - Hospitalisation [Unknown]
  - Escherichia infection [Unknown]

NARRATIVE: CASE EVENT DATE: 201801
